FAERS Safety Report 22898114 (Version 5)
Quarter: 2024Q4

REPORT INFORMATION
  Report Type: Report from Study
  Country: PH (occurrence: PH)
  Receive Date: 20230903
  Receipt Date: 20241129
  Transmission Date: 20250115
  Serious: Yes (Hospitalization, Other)
  Sender: SANDOZ
  Company Number: PH-002147023-NVSC2023PH136701

PATIENT
  Age: 56 Year
  Sex: Male
  Weight: 68 kg

DRUGS (57)
  1. BEDAQUILINE [Suspect]
     Active Substance: BEDAQUILINE
     Dosage: 200 MG
     Route: 048
     Dates: start: 20230526
  2. BEDAQUILINE [Suspect]
     Active Substance: BEDAQUILINE
     Indication: Tuberculosis
     Dosage: 200 MG
     Route: 048
     Dates: start: 20230620
  3. BEDAQUILINE [Suspect]
     Active Substance: BEDAQUILINE
     Dosage: 200 MG
     Route: 048
     Dates: start: 20230718
  4. BEDAQUILINE [Suspect]
     Active Substance: BEDAQUILINE
     Dosage: 100 MG OD
     Route: 048
     Dates: start: 20230803
  5. BEDAQUILINE [Suspect]
     Active Substance: BEDAQUILINE
     Dosage: 100 MG OD
     Route: 048
     Dates: start: 20230810
  6. BEDAQUILINE [Suspect]
     Active Substance: BEDAQUILINE
     Dosage: 100 MG OD
     Route: 048
     Dates: start: 20230810
  7. BEDAQUILINE [Suspect]
     Active Substance: BEDAQUILINE
     Dosage: 200 MG, QD
     Route: 048
     Dates: start: 20230530
  8. CLOFAZIMINE [Suspect]
     Active Substance: CLOFAZIMINE
     Dosage: 100 MG OD
     Route: 048
     Dates: start: 20230526, end: 20230610
  9. CLOFAZIMINE [Suspect]
     Active Substance: CLOFAZIMINE
     Dosage: 100 MG OD
     Route: 048
     Dates: start: 20230530, end: 20230705
  10. CLOFAZIMINE [Suspect]
     Active Substance: CLOFAZIMINE
     Dosage: 100 MG OD
     Route: 048
     Dates: start: 20230718, end: 20230803
  11. CLOFAZIMINE [Suspect]
     Active Substance: CLOFAZIMINE
     Indication: Tuberculosis
     Dosage: 100 MG OD
     Route: 048
     Dates: start: 20230810
  12. CLOFAZIMINE [Suspect]
     Active Substance: CLOFAZIMINE
     Dosage: 100 MG OD
     Route: 048
     Dates: start: 20230620
  13. CLOFAZIMINE [Suspect]
     Active Substance: CLOFAZIMINE
     Dosage: 100 MG OD
     Route: 048
     Dates: start: 20230803
  14. DELAMANID [Suspect]
     Active Substance: DELAMANID
     Indication: Tuberculosis
     Dosage: 300 MG
     Route: 048
     Dates: start: 20230526
  15. DELAMANID [Suspect]
     Active Substance: DELAMANID
     Dosage: 300 MG
     Route: 048
     Dates: start: 20230620
  16. DELAMANID [Suspect]
     Active Substance: DELAMANID
     Dosage: 300 MG
     Route: 048
     Dates: start: 20230718
  17. DELAMANID [Suspect]
     Active Substance: DELAMANID
     Dosage: 100 MG
     Route: 048
     Dates: start: 20230803
  18. DELAMANID [Suspect]
     Active Substance: DELAMANID
     Dosage: 300 MG, QD
     Route: 048
     Dates: start: 20230530
  19. DELAMANID [Suspect]
     Active Substance: DELAMANID
     Dosage: 300 MG
     Route: 048
     Dates: start: 20230810
  20. LEVOFLOXACIN [Suspect]
     Active Substance: LEVOFLOXACIN
     Indication: Tuberculosis
     Dosage: 1000 MG, QD
     Route: 048
     Dates: start: 20230526, end: 20230613
  21. LEVOFLOXACIN [Suspect]
     Active Substance: LEVOFLOXACIN
     Dosage: 1000 MG, QD
     Route: 048
     Dates: start: 20230620
  22. LEVOFLOXACIN [Suspect]
     Active Substance: LEVOFLOXACIN
     Dosage: 1000 MG, QD
     Route: 048
     Dates: start: 20230718, end: 20230803
  23. LEVOFLOXACIN [Suspect]
     Active Substance: LEVOFLOXACIN
     Dosage: 1000 MG, QD
     Route: 065
     Dates: start: 20230803
  24. LINEZOLID [Suspect]
     Active Substance: LINEZOLID
     Indication: Tuberculosis
     Dosage: 1200 MG
     Route: 048
     Dates: start: 20230526, end: 20230613
  25. LINEZOLID [Suspect]
     Active Substance: LINEZOLID
     Dosage: 1200 MG (REDUCED DOSE AT 600MG OD)
     Route: 048
     Dates: start: 20230620
  26. LINEZOLID [Suspect]
     Active Substance: LINEZOLID
     Dosage: 600 MG, QD
     Route: 048
     Dates: start: 20230629, end: 20230629
  27. LINEZOLID [Suspect]
     Active Substance: LINEZOLID
     Dosage: 600 MG, QD
     Route: 048
     Dates: start: 20230530, end: 20230705
  28. LINEZOLID [Suspect]
     Active Substance: LINEZOLID
     Dosage: 600 MG
     Route: 048
     Dates: start: 20230629, end: 20230629
  29. ALLOPURINOL [Concomitant]
     Active Substance: ALLOPURINOL
     Indication: Product used for unknown indication
     Dosage: 100 MG, OD
     Route: 065
     Dates: start: 20230804
  30. APIXABAN [Concomitant]
     Active Substance: APIXABAN
     Indication: Product used for unknown indication
     Dosage: 5 MG, BID
     Route: 065
     Dates: start: 20230704, end: 20230806
  31. APIXABAN [Concomitant]
     Active Substance: APIXABAN
     Dosage: 5 MG, BID
     Route: 065
     Dates: start: 20230704
  32. ASPIRIN [Concomitant]
     Active Substance: ASPIRIN
     Indication: Product used for unknown indication
     Dosage: UNK
     Route: 065
  33. ATORVASTATIN [Concomitant]
     Active Substance: ATORVASTATIN
     Dosage: 10 MG
     Route: 065
  34. ATORVASTATIN [Concomitant]
     Active Substance: ATORVASTATIN
     Indication: Product used for unknown indication
     Dosage: 20 MG, OD
     Route: 065
     Dates: start: 20230607
  35. ATORVASTATIN [Concomitant]
     Active Substance: ATORVASTATIN
     Dosage: 20 MG
     Route: 065
  36. ATORVASTATIN [Concomitant]
     Active Substance: ATORVASTATIN
     Dosage: 40 MG
     Route: 065
     Dates: start: 20230607
  37. ATORVASTATIN [Concomitant]
     Active Substance: ATORVASTATIN
     Dosage: 80 MG
     Route: 065
  38. CALCIUM CARBONATE [Concomitant]
     Active Substance: CALCIUM CARBONATE
     Indication: Hypocalcaemia
     Route: 065
  39. FERROUS SULFATE [Concomitant]
     Active Substance: FERROUS SULFATE
     Indication: Product used for unknown indication
     Dosage: 500 MG, BID
     Route: 048
  40. FERROUS SULFATE [Concomitant]
     Active Substance: FERROUS SULFATE
     Dosage: 325 MG, BID
     Route: 065
     Dates: start: 20230719
  41. GEMIGLIPTIN [Concomitant]
     Active Substance: GEMIGLIPTIN
     Indication: Product used for unknown indication
     Dosage: UNK
     Route: 065
  42. GLICLAZIDE [Concomitant]
     Active Substance: GLICLAZIDE
     Dosage: 30 MG
     Route: 065
  43. GLICLAZIDE [Concomitant]
     Active Substance: GLICLAZIDE
     Indication: Product used for unknown indication
     Dosage: 60 MG, OD
     Route: 065
     Dates: start: 20230607
  44. GLICLAZIDE [Concomitant]
     Active Substance: GLICLAZIDE
     Dosage: 80 MG
     Route: 065
  45. GLICLAZIDE MR STADA [Concomitant]
     Indication: Product used for unknown indication
     Dosage: 60 MG, OD
     Route: 065
     Dates: start: 20230607
  46. LOSARTAN [Concomitant]
     Active Substance: LOSARTAN
     Indication: Hypertension
     Dosage: 50 MG, 1X/DAY
     Route: 065
  47. MAGNESIUM [Concomitant]
     Active Substance: MAGNESIUM
     Dosage: 200 MG
     Route: 065
  48. MAGNESIUM [Concomitant]
     Active Substance: MAGNESIUM
     Indication: Hypomagnesaemia
     Dosage: 5 G IN 230CC D5W TO RUN FOR 24HOURS
     Route: 065
  49. MELATONIN [Concomitant]
     Active Substance: MELATONIN
     Indication: Product used for unknown indication
     Dosage: 3 MG, OD
     Route: 065
     Dates: start: 20230607
  50. METFORMIN\VILDAGLIPTIN [Concomitant]
     Active Substance: METFORMIN\VILDAGLIPTIN
     Dosage: 500 MG
     Route: 065
     Dates: start: 20230607, end: 20230614
  51. METFORMIN\VILDAGLIPTIN [Concomitant]
     Active Substance: METFORMIN\VILDAGLIPTIN
     Indication: Product used for unknown indication
     Dosage: 500 MG, TID
     Route: 065
     Dates: start: 20230607, end: 20230614
  52. OMEPRAZOLE [Concomitant]
     Active Substance: OMEPRAZOLE
     Dosage: 40 MG IV Q24
     Route: 065
     Dates: start: 20230807
  53. OMEPRAZOLE [Concomitant]
     Active Substance: OMEPRAZOLE
     Indication: Product used for unknown indication
     Dosage: 40 MG ODAM
     Route: 065
     Dates: start: 20230806
  54. OMEPRAZOLE [Concomitant]
     Active Substance: OMEPRAZOLE
     Dosage: UNK
     Route: 065
     Dates: start: 20230808
  55. POTASSIUM CITRATE [Concomitant]
     Active Substance: POTASSIUM CITRATE
     Indication: Product used for unknown indication
     Dosage: 1080 MG, BID
     Route: 065
     Dates: start: 20230803
  56. ROSUVASTATIN [Concomitant]
     Active Substance: ROSUVASTATIN
     Indication: Dyslipidaemia
     Dosage: 10 MG, 1X/DAY
     Route: 065
     Dates: start: 20230607, end: 20230711
  57. SODIUM BICARBONATE [Concomitant]
     Active Substance: SODIUM BICARBONATE
     Indication: Product used for unknown indication
     Dosage: 100 MG, OD
     Route: 065
     Dates: start: 20230804

REACTIONS (5)
  - Dehydration [Recovered/Resolved]
  - Acute kidney injury [Recovered/Resolved]
  - Acute kidney injury [Unknown]
  - Anaemia [Recovered/Resolved]
  - Cholelithiasis [Recovered/Resolved]

NARRATIVE: CASE EVENT DATE: 20230613
